FAERS Safety Report 5550708-X (Version None)
Quarter: 2007Q4

REPORT INFORMATION
  Report Type: 
  Country: None (occurrence: None)
  Receive Date: 20071210
  Receipt Date: 20071126
  Transmission Date: 20080405
  Serious: Yes (Death, Life-Threatening)
  Sender: FDA-Public Use
  Company Number: 43270

PATIENT
  Age: 48 Year
  Sex: Male

DRUGS (1)
  1. CISPLATIN [Suspect]
     Indication: PANCREATIC CARCINOMA

REACTIONS (12)
  - ALLODYNIA [None]
  - CYANOSIS [None]
  - DRY GANGRENE [None]
  - DYSAESTHESIA [None]
  - FINGER AMPUTATION [None]
  - HYPERAEMIA [None]
  - HYPERAESTHESIA [None]
  - PARAESTHESIA [None]
  - PERIPHERAL ISCHAEMIA [None]
  - PNEUMONIA [None]
  - RAYNAUD'S PHENOMENON [None]
  - TUMOUR MARKER INCREASED [None]
